FAERS Safety Report 5443365-4 (Version None)
Quarter: 2007Q3

REPORT INFORMATION
  Report Type: 
  Country: None (occurrence: None)
  Receive Date: 20070905
  Receipt Date: 20070829
  Transmission Date: 20080115
  Serious: Yes (Other)
  Sender: FDA-Public Use
  Company Number: A0678178A

PATIENT
  Sex: Female

DRUGS (1)
  1. AVANDIA [Suspect]
     Indication: DRUG USE FOR UNKNOWN INDICATION
     Route: 048
     Dates: start: 20000301, end: 20010330

REACTIONS (5)
  - AFFECTIVE DISORDER [None]
  - CARDIAC FAILURE CONGESTIVE [None]
  - PAIN [None]
  - RENAL FAILURE [None]
  - RENAL TRANSPLANT [None]
